FAERS Safety Report 19441944 (Version 1)
Quarter: 2021Q2

REPORT INFORMATION
  Report Type: Spontaneous
  Country: US (occurrence: US)
  Receive Date: 20210618
  Receipt Date: 20210618
  Transmission Date: 20210717
  Serious: Yes (Death)
  Sender: FDA-Public Use
  Company Number: None

PATIENT

DRUGS (1)
  1. CALCITRIOL .5MGC CAPSULES [Suspect]
     Active Substance: CALCITRIOL

REACTIONS (1)
  - Death [None]
